FAERS Safety Report 4420850-5 (Version None)
Quarter: 2004Q3

REPORT INFORMATION
  Report Type: 
  Country: None (occurrence: None)
  Receive Date: 20040809
  Receipt Date: 20040707
  Transmission Date: 20050211
  Serious: Yes (Hospitalization)
  Sender: FDA-Public Use
  Company Number: 200415106US

PATIENT
  Sex: Male

DRUGS (26)
  1. ENOXAPARIN SODIUM [Suspect]
     Indication: PROPHYLAXIS
     Route: 058
     Dates: start: 20040616, end: 20040620
  2. ENOXAPARIN SODIUM [Suspect]
     Indication: THROMBOSIS
     Route: 058
     Dates: start: 20040616, end: 20040620
  3. ECOTRIN [Concomitant]
     Indication: OSTEOARTHRITIS
     Dosage: DOSE: UNK
     Route: 048
     Dates: start: 20040501, end: 20040613
  4. MULTIVITAMINS, PLAIN [Concomitant]
     Dosage: DOSE: UNK
     Route: 048
     Dates: start: 20040501
  5. GLUCOSAMINE W/CHONDROITIN SULFATES [Concomitant]
     Indication: OSTEOARTHRITIS
     Dosage: DOSE: UNK
     Route: 048
     Dates: start: 20040501, end: 20040613
  6. DOCUSATE CALCIUM [Concomitant]
     Indication: CONSTIPATION PROPHYLAXIS
     Route: 048
     Dates: start: 20040616
  7. BEXTRA [Concomitant]
     Indication: POST PROCEDURAL PAIN
     Route: 048
     Dates: start: 20040615, end: 20040615
  8. DEXTROSE 5% [Concomitant]
     Indication: KNEE OPERATION
     Route: 042
     Dates: start: 20040615, end: 20040616
  9. MORPHINE [Concomitant]
     Indication: POST PROCEDURAL PAIN
     Dosage: DOSE: UNK
     Route: 042
     Dates: start: 20040615, end: 20040616
  10. PROTONIX [Concomitant]
     Route: 048
     Dates: start: 20040615, end: 20040617
  11. VANCOMYCIN HCL [Concomitant]
     Indication: INFECTION PROPHYLAXIS
     Route: 042
     Dates: start: 20040616, end: 20040616
  12. PERCOCET [Concomitant]
     Indication: POST PROCEDURAL PAIN
     Dosage: DOSE: 5/325
     Route: 048
     Dates: start: 20040616, end: 20040617
  13. ZOFRAN [Concomitant]
     Indication: NAUSEA
     Route: 042
     Dates: start: 20040616, end: 20040616
  14. OXYCONTIN [Concomitant]
     Indication: POST PROCEDURAL PAIN
     Route: 048
     Dates: start: 20040617
  15. IRON [Concomitant]
     Indication: ANAEMIA
     Route: 048
     Dates: start: 20040619
  16. ARIXTRA [Concomitant]
     Indication: DEEP VEIN THROMBOSIS
     Route: 058
     Dates: start: 20040621
  17. ATIVAN [Concomitant]
     Dosage: DOSE: UNK
     Route: 048
     Dates: start: 20040620
  18. VERSED [Concomitant]
     Route: 042
     Dates: start: 20040615, end: 20040615
  19. SEVOFLURANE [Concomitant]
     Dosage: DOSE: UNK
     Route: 055
     Dates: start: 20040615, end: 20040615
  20. FENTANYL [Concomitant]
     Route: 042
     Dates: start: 20040615, end: 20040615
  21. PROPOFOL [Concomitant]
     Route: 042
     Dates: start: 20040615, end: 20040615
  22. LIDOCAINE [Concomitant]
     Route: 042
     Dates: start: 20040615, end: 20040615
  23. VANCOMYCIN HCL [Concomitant]
     Dosage: ROUTE: IRRIGATION
     Route: 050
     Dates: start: 20040615, end: 20040615
  24. GENTAMYCIN SULFATE [Concomitant]
     Indication: INFECTION PROPHYLAXIS
     Dosage: ROUTE: IRRIGATION
     Route: 050
     Dates: start: 20040615, end: 20040615
  25. CEFAZOLIN [Concomitant]
     Indication: INFECTION PROPHYLAXIS
     Dosage: ROUTE: IRRIGATION
     Route: 050
     Dates: start: 20040615, end: 20040615
  26. MARCAINE HCL W/ EPINEPHRINE [Concomitant]
     Indication: POST PROCEDURAL PAIN
     Dates: start: 20040615, end: 20040615

REACTIONS (34)
  - ACUTE PRERENAL FAILURE [None]
  - AORTIC VALVE SCLEROSIS [None]
  - ARTERIOSCLEROSIS [None]
  - ATRIAL TACHYCARDIA [None]
  - CARDIOMEGALY [None]
  - CHEST X-RAY ABNORMAL [None]
  - CLOSTRIDIUM DIFFICILE TOXIN TEST [None]
  - DEMENTIA [None]
  - DEPRESSED LEVEL OF CONSCIOUSNESS [None]
  - DIARRHOEA [None]
  - DUODENITIS [None]
  - GASTROINTESTINAL HAEMORRHAGE [None]
  - HEART RATE INCREASED [None]
  - HIATUS HERNIA [None]
  - HYPOAESTHESIA [None]
  - HYPOXIA [None]
  - MEDICATION ERROR [None]
  - MELAENA [None]
  - MENTAL STATUS CHANGES [None]
  - METABOLIC DISORDER [None]
  - MITRAL VALVE INCOMPETENCE [None]
  - MYOCARDIAL INFARCTION [None]
  - NORMOCHROMIC NORMOCYTIC ANAEMIA [None]
  - OESOPHAGITIS [None]
  - PYREXIA [None]
  - QRS AXIS ABNORMAL [None]
  - RENAL FAILURE [None]
  - SEROLOGY POSITIVE [None]
  - SINUS ARRHYTHMIA [None]
  - SINUSITIS [None]
  - SUPRAVENTRICULAR EXTRASYSTOLES [None]
  - TRANSIENT ISCHAEMIC ATTACK [None]
  - VENTRICULAR EXTRASYSTOLES [None]
  - VENTRICULAR HYPERTROPHY [None]
